FAERS Safety Report 8965734 (Version 1)
Quarter: 2012Q4

REPORT INFORMATION
  Report Type: Spontaneous
  Country: FR (occurrence: None)
  Receive Date: 20121204
  Receipt Date: 20121204
  Transmission Date: 20130627
  Serious: Yes (Hospitalization)
  Sender: FDA-Public Use
  Company Number: DSA_61180_2012

PATIENT
  Age: 71 Year
  Sex: Female

DRUGS (4)
  1. FLAGYL [Suspect]
     Indication: DECUBITUS ULCER
     Route: 048
     Dates: start: 20121022, end: 20021023
  2. AMOXICILLIN\CLAVULANIC ACID [Suspect]
     Indication: DECUBITUS ULCER
     Dosage: (DF)
     Dates: start: 20121015
  3. ROCEPHIN [Suspect]
     Indication: DECUBITUS ULCER
     Dosage: (DF)
     Dates: start: 0012, end: 20121021
  4. ALLOPURINOL [Concomitant]

REACTIONS (2)
  - Pneumonia aspiration [None]
  - Rash generalised [None]
